FAERS Safety Report 8538959-3 (Version None)
Quarter: 2012Q3

REPORT INFORMATION
  Report Type: 
  Country: None (occurrence: None)
  Receive Date: 20120726
  Receipt Date: 20120718
  Transmission Date: 20120928
  Serious: Yes (Hospitalization)
  Sender: FDA-Public Use
  Company Number: PHHY2012FR062427

PATIENT
  Sex: Male

DRUGS (9)
  1. TEGRETOL [Suspect]
     Indication: EPILEPSY
     Route: 048
  2. PHENOBARBITAL TAB [Suspect]
     Indication: EPILEPSY
     Dosage: 80 MG, QD
     Route: 048
  3. CLOBAZAM [Concomitant]
     Dosage: 5 UKN, TID
  4. TIAPRIDAL [Concomitant]
     Dosage: 5 DRP, BID
  5. TEGRETOL [Suspect]
     Dosage: 1.5 DF IN MORNING
     Route: 048
  6. LAMICTAL [Concomitant]
     Dosage: 100 UKN, BID
  7. PHENOBARBITAL TAB [Suspect]
     Dosage: 70 MG, QD
     Route: 048
  8. KEPPRA [Concomitant]
     Dosage: 3 DF, BID
  9. NEURONTIN [Concomitant]
     Dosage: 400-600-600

REACTIONS (6)
  - ACCIDENTAL OVERDOSE [None]
  - BALANCE DISORDER [None]
  - ANTICONVULSANT DRUG LEVEL INCREASED [None]
  - ABNORMAL BEHAVIOUR [None]
  - HYPONATRAEMIA [None]
  - NEUROLOGICAL DECOMPENSATION [None]
